FAERS Safety Report 8580986-4 (Version None)
Quarter: 2012Q3

REPORT INFORMATION
  Report Type: 
  Country: None (occurrence: None)
  Receive Date: 20120809
  Receipt Date: 20120807
  Transmission Date: 20120928
  Serious: No
  Sender: FDA-Public Use
  Company Number: US-PFIZER INC-2012192407

PATIENT
  Age: 26 Year
  Sex: Female
  Weight: 49 kg

DRUGS (1)
  1. ADVIL [Suspect]
     Indication: PAIN
     Dosage: 200MG THREE ADVIL LIQUIGELS, 4X/DAY/ 600MG FOUR TIMES A DAY
     Route: 048
     Dates: start: 20120804

REACTIONS (2)
  - DRUG INEFFECTIVE [None]
  - OVERDOSE [None]
